FAERS Safety Report 8890013 (Version 1)
Quarter: 2012Q4

REPORT INFORMATION
  Report Type: Spontaneous
  Country: US (occurrence: None)
  Receive Date: 20121102
  Receipt Date: 20121102
  Transmission Date: 20130627
  Serious: Yes (Other)
  Sender: FDA-Public Use
  Company Number: None

PATIENT
  Age: 15 Year
  Sex: Female

DRUGS (1)
  1. MIGRANAL [Suspect]
     Indication: MIGRAINE
     Dosage: One spray each nostril As needed Nasal
     Route: 045
     Dates: start: 20121023, end: 20121026

REACTIONS (2)
  - Myalgia [None]
  - Feeling abnormal [None]
